FAERS Safety Report 18279118 (Version 2)
Quarter: 2020Q4

REPORT INFORMATION
  Report Type: Report from Study
  Country: US (occurrence: US)
  Receive Date: 20200917
  Receipt Date: 20201120
  Transmission Date: 20210113
  Serious: Yes (Hospitalization)
  Sender: FDA-Public Use
  Company Number: US-JNJFOC-A-NJ2018-165742

PATIENT
  Age: 45 Year
  Sex: Female
  Weight: 99.43 kg

DRUGS (8)
  1. ORENITRAM [Suspect]
     Active Substance: TREPROSTINIL
     Dosage: 9.75 MG, TID
     Route: 065
  2. ADCIRCA [Concomitant]
     Active Substance: TADALAFIL
  3. ORENITRAM [Suspect]
     Active Substance: TREPROSTINIL
     Indication: PULMONARY ARTERIAL HYPERTENSION
     Dosage: 1.25 MG, TID
     Route: 065
  4. ORENITRAM [Suspect]
     Active Substance: TREPROSTINIL
     Dosage: UNK, BID
     Route: 065
  5. TADALAFIL. [Concomitant]
     Active Substance: TADALAFIL
  6. OPSUMIT [Suspect]
     Active Substance: MACITENTAN
     Indication: PULMONARY ARTERIAL HYPERTENSION
     Route: 048
     Dates: start: 20170201
  7. ORENITRAM [Suspect]
     Active Substance: TREPROSTINIL
     Dosage: 10.25 MG, BID
     Route: 065
  8. COUMADIN [Concomitant]
     Active Substance: WARFARIN SODIUM
     Dosage: UNK UNK, TID

REACTIONS (26)
  - Toe amputation [Recovered/Resolved]
  - Cardiac failure congestive [Recovered/Resolved]
  - Blood blister [Unknown]
  - Erythema [Unknown]
  - Headache [Unknown]
  - Tremor [Unknown]
  - Hyperbaric oxygen therapy [Unknown]
  - Wound [Unknown]
  - Diarrhoea [Unknown]
  - Feeling abnormal [Unknown]
  - Pyrexia [Not Recovered/Not Resolved]
  - Skin ulcer [Unknown]
  - Body temperature increased [Unknown]
  - Dyspnoea [Not Recovered/Not Resolved]
  - Localised infection [Recovered/Resolved]
  - Oedema [Recovered/Resolved]
  - Nausea [Unknown]
  - Arthralgia [Unknown]
  - Flushing [Unknown]
  - Impaired healing [Unknown]
  - Fluid overload [Recovered/Resolved]
  - Palpitations [Unknown]
  - Abdominal discomfort [Unknown]
  - Joint effusion [Unknown]
  - Weight decreased [Unknown]
  - Pulmonary vascular disorder [Unknown]
